FAERS Safety Report 20896020 (Version 3)
Quarter: 2022Q3

REPORT INFORMATION
  Report Type: Spontaneous
  Country: US (occurrence: US)
  Receive Date: 20220531
  Receipt Date: 20220707
  Transmission Date: 20221027
  Serious: No
  Sender: FDA-Public Use
  Company Number: US-PFIZER INC-202200765349

PATIENT
  Age: 71 Year
  Sex: Female

DRUGS (1)
  1. INLYTA [Suspect]
     Active Substance: AXITINIB
     Dosage: 5 MG

REACTIONS (5)
  - Fatigue [Unknown]
  - Alopecia [Unknown]
  - Asthenia [Unknown]
  - Glossodynia [Unknown]
  - Stomatitis [Recovering/Resolving]

NARRATIVE: CASE EVENT DATE: 20220601
